FAERS Safety Report 6739977-8 (Version None)
Quarter: 2010Q2

REPORT INFORMATION
  Report Type: 
  Country: None (occurrence: None)
  Receive Date: 20100525
  Receipt Date: 20100512
  Transmission Date: 20101027
  Serious: Yes (Disabling, Other)
  Sender: FDA-Public Use
  Company Number: MY-ELI_LILLY_AND_COMPANY-MY200906006564

PATIENT
  Age: 50 Year
  Sex: Male

DRUGS (7)
  1. HUMULIN 70/30 [Suspect]
     Indication: TYPE 2 DIABETES MELLITUS
     Dosage: UNK, UNKNOWN
     Route: 065
  2. HUMULIN 70/30 [Suspect]
     Dosage: UNK, UNKNOWN
     Route: 042
  3. HUMULIN 70/30 [Suspect]
     Dosage: UNK, UNKNOWN
  4. MIXTARD HUMAN 70/30 [Concomitant]
     Dosage: UNK, UNKNOWN
     Route: 065
  5. ACARBOSE [Concomitant]
     Dosage: UNK, UNKNOWN
     Route: 065
     Dates: start: 20100101
  6. METFORMIN [Concomitant]
     Dosage: UNK, UNKNOWN
     Route: 065
     Dates: start: 20100101
  7. GLICLAZIDE [Concomitant]
     Dosage: UNK, UNKNOWN
     Route: 065
     Dates: start: 20100101

REACTIONS (6)
  - BLOOD GLUCOSE FLUCTUATION [None]
  - IMPAIRED WORK ABILITY [None]
  - INJECTION SITE SWELLING [None]
  - MALABSORPTION FROM INJECTION SITE [None]
  - OFF LABEL USE [None]
  - SYNCOPE [None]
